FAERS Safety Report 13544729 (Version 5)
Quarter: 2017Q2

REPORT INFORMATION
  Report Type: Report from Study
  Country: JP (occurrence: JP)
  Receive Date: 20170515
  Receipt Date: 20170619
  Transmission Date: 20170830
  Serious: Yes (Death, Hospitalization)
  Sender: FDA-Public Use
  Company Number: JP-EISAI MEDICAL RESEARCH-EC-2017-027444

PATIENT
  Age: 46 Year
  Sex: Male
  Weight: 62 kg

DRUGS (7)
  1. SODIUM RABEPRAZOLE [Concomitant]
     Active Substance: RABEPRAZOLE SODIUM
  2. AZUNOL GARGLE LIQUID [Concomitant]
  3. NIFEDIPINE CR [Concomitant]
     Active Substance: NIFEDIPINE
  4. LOXOPROFEN SODIUM HYDRATE [Concomitant]
     Active Substance: LOXOPROFEN SODIUM DIHYDRATE
  5. LENVATINIB [Suspect]
     Active Substance: LENVATINIB
     Indication: LUNG ADENOCARCINOMA
     Route: 048
     Dates: start: 20170216, end: 20170430
  6. PEMBROLIZUMAB. [Suspect]
     Active Substance: PEMBROLIZUMAB
     Indication: LUNG ADENOCARCINOMA
     Route: 041
     Dates: start: 20170216, end: 20170420
  7. THYRADIN S [Concomitant]
     Active Substance: LEVOTHYROXINE SODIUM

REACTIONS (1)
  - Pneumonitis [Fatal]

NARRATIVE: CASE EVENT DATE: 20170330
